FAERS Safety Report 15838297 (Version 1)
Quarter: 2019Q1

REPORT INFORMATION
  Report Type: Spontaneous
  Country: GB (occurrence: GB)
  Receive Date: 20190117
  Receipt Date: 20190117
  Transmission Date: 20190417
  Serious: Yes (Hospitalization, Disabling, Other)
  Sender: FDA-Public Use
  Company Number: GB-PFIZER INC-2019016770

PATIENT
  Age: 75 Year
  Sex: Female
  Weight: 57 kg

DRUGS (2)
  1. DAKTARIN [Suspect]
     Active Substance: MICONAZOLE NITRATE
     Indication: TINEA PEDIS
     Dosage: 2MM VOLUME OF CREAM
     Route: 061
     Dates: start: 20181115, end: 20181116
  2. AMLODIPINE BESILATE [Suspect]
     Active Substance: AMLODIPINE BESYLATE
     Indication: HYPERTENSION
     Dosage: 5 MG, UNK

REACTIONS (2)
  - Application site vesicles [Recovered/Resolved with Sequelae]
  - Impaired healing [Recovering/Resolving]

NARRATIVE: CASE EVENT DATE: 20181116
